FAERS Safety Report 4743701-8 (Version None)
Quarter: 2005Q3

REPORT INFORMATION
  Report Type: 
  Country: None (occurrence: None)
  Receive Date: 20050809
  Receipt Date: 20050426
  Transmission Date: 20060218
  Serious: Yes (Hospitalization)
  Sender: FDA-Public Use
  Company Number: 863#2#2005-00004

PATIENT
  Sex: Female

DRUGS (1)
  1. IDROLAX (MACROGOL) [Suspect]
     Indication: COLONOSCOPY
     Dosage: 1.256 G (64G/L 4 IN 4 HOUR (S)) ORAL
     Route: 048
     Dates: start: 20050330, end: 20050330

REACTIONS (5)
  - ANAL FISSURE [None]
  - GASTROINTESTINAL DISORDER [None]
  - INFLAMMATORY BOWEL DISEASE [None]
  - INTESTINAL PERFORATION [None]
  - PROCEDURAL COMPLICATION [None]
